FAERS Safety Report 11785107 (Version 2)
Quarter: 2016Q1

REPORT INFORMATION
  Report Type: Spontaneous
  Country: US (occurrence: US)
  Receive Date: 20151130
  Receipt Date: 20160112
  Transmission Date: 20160525
  Serious: Yes (Other)
  Sender: FDA-Public Use
  Company Number: US-ROCHE-1669313

PATIENT
  Sex: Male
  Weight: 83.99 kg

DRUGS (1)
  1. ESBRIET [Suspect]
     Active Substance: PIRFENIDONE
     Indication: IDIOPATHIC PULMONARY FIBROSIS
     Dosage: 3 CAPSULES 3 TIMES A DAY
     Route: 048
     Dates: start: 20151026

REACTIONS (11)
  - Rhinorrhoea [Unknown]
  - Insomnia [Unknown]
  - Nausea [Unknown]
  - Renal pain [Unknown]
  - Gastrooesophageal reflux disease [Unknown]
  - Cough [Unknown]
  - Amnesia [Unknown]
  - Confusional state [Unknown]
  - Sinus operation [Unknown]
  - Decreased appetite [Unknown]
  - Anxiety [Unknown]
